FAERS Safety Report 18007516 (Version 2)
Quarter: 2020Q3

REPORT INFORMATION
  Report Type: Spontaneous
  Country: ES (occurrence: ES)
  Receive Date: 20200710
  Receipt Date: 20200720
  Transmission Date: 20201103
  Serious: Yes (Hospitalization, Other)
  Sender: FDA-Public Use
  Company Number: ES-MYLANLABS-2020M1061497

PATIENT
  Age: 46 Year
  Sex: Male

DRUGS (2)
  1. CLOZAPINE. [Suspect]
     Active Substance: CLOZAPINE
     Dosage: DOSE SLIGHTLY INCREASED AND THERAPY MAINTAINED
     Route: 065
  2. CLOZAPINE. [Suspect]
     Active Substance: CLOZAPINE
     Indication: SCHIZOPHRENIA
     Dosage: 600 MILLIGRAM, QD, FROM LAST TWO DECADES
     Route: 065

REACTIONS (4)
  - Agranulocytosis [Unknown]
  - Febrile neutropenia [Recovered/Resolved]
  - General physical health deterioration [Unknown]
  - Pyrexia [Unknown]
